FAERS Safety Report 7081181-0 (Version None)
Quarter: 2010Q4

REPORT INFORMATION
  Report Type: 
  Country: None (occurrence: None)
  Receive Date: 20101025
  Receipt Date: 20101009
  Transmission Date: 20110411
  Serious: Yes (Hospitalization, Other)
  Sender: FDA-Public Use
  Company Number: 1000016548

PATIENT
  Age: 17 Year
  Sex: Female
  Weight: 122 kg

DRUGS (3)
  1. ESCITALOPRAM [Suspect]
     Dosage: 20 MG, ONCE), ORAL
     Route: 048
     Dates: start: 20100927, end: 20100927
  2. SEROQUEL [Suspect]
     Dosage: (100 MG, ONCE), ORAL
     Route: 048
     Dates: start: 20100927, end: 20100927
  3. DIPIPERON (PIPAMPERONE HYDROCHLORIDE) (40 MILLIGRAM, TABLETS) [Suspect]
     Dosage: (40 MG, ONCE), ORAL
     Route: 048
     Dates: start: 20100927, end: 20100927

REACTIONS (2)
  - DRUG ABUSE [None]
  - TACHYCARDIA [None]
